FAERS Safety Report 4862946-X (Version None)
Quarter: 2005Q4

REPORT INFORMATION
  Report Type: 
  Country: None (occurrence: None)
  Receive Date: 20051219
  Receipt Date: 20051208
  Transmission Date: 20060501
  Serious: Yes (Hospitalization)
  Sender: FDA-Public Use
  Company Number: 218689

PATIENT
  Age: 14 Year
  Sex: Male

DRUGS (8)
  1. XOLAIR [Suspect]
     Indication: ASTHMA
     Dosage: 300 MG, Q28D, SUBCUTANEOUS
     Route: 058
     Dates: start: 20050601, end: 20050906
  2. ADVAIR DISKUS 100/50 [Concomitant]
  3. SINGULAIR [Concomitant]
  4. CLINDAMYCIN [Concomitant]
  5. ALBUTEROL (ALBUTEROL/ALBUTEROL SULFATE) [Concomitant]
  6. XOPENEX [Concomitant]
  7. IPRATROPIUM (IPRATROPIUM BROMIDE) [Concomitant]
  8. PREDNISIONE (PREDNISONE) [Concomitant]

REACTIONS (9)
  - CRYING [None]
  - HEADACHE [None]
  - INSOMNIA [None]
  - MIGRAINE [None]
  - MYALGIA [None]
  - NASAL DISCOMFORT [None]
  - NAUSEA [None]
  - PAIN [None]
  - VOMITING [None]
